FAERS Safety Report 6614410-5 (Version None)
Quarter: 2010Q1

REPORT INFORMATION
  Report Type: 
  Country: None (occurrence: None)
  Receive Date: 20100303
  Receipt Date: 20100303
  Transmission Date: 20100710
  Serious: Yes (Other)
  Sender: FDA-Public Use
  Company Number: None

PATIENT
  Age: 29 Year
  Sex: Female
  Weight: 55.7924 kg

DRUGS (2)
  1. TRI LO SPRINTEC [Suspect]
     Indication: CONTRACEPTION
     Dosage: 1 QD PO
     Route: 048
     Dates: start: 20090601, end: 20090628
  2. TRI LO SPRINTEC [Suspect]
     Indication: CONTRACEPTION
     Dosage: 1 QD PO
     Route: 048
     Dates: start: 20090901, end: 20090906

REACTIONS (3)
  - ANXIETY [None]
  - FEELING ABNORMAL [None]
  - PRODUCT SUBSTITUTION ISSUE [None]
